FAERS Safety Report 8397726-4 (Version None)
Quarter: 2012Q2

REPORT INFORMATION
  Report Type: 
  Country: None (occurrence: None)
  Receive Date: 20120531
  Receipt Date: 20120524
  Transmission Date: 20120825
  Serious: No
  Sender: FDA-Public Use
  Company Number: US-BAYER-2012-051987

PATIENT
  Age: 50 Year
  Sex: Female
  Weight: 82 kg

DRUGS (5)
  1. CALCIUM [Concomitant]
     Dosage: 500 MG, UNK
  2. VITAMIN B-12 [Concomitant]
     Dosage: 1000 ?G, UNK
  3. BETASERON [Suspect]
     Dosage: .3 MG, QOD
     Route: 058
  4. MINERALS NOS [Concomitant]
  5. VITAMIN D [Concomitant]
     Dosage: 2000 IU, UNK

REACTIONS (1)
  - DEPRESSION [None]
